FAERS Safety Report 24259997 (Version 1)
Quarter: 2024Q3

REPORT INFORMATION
  Report Type: Spontaneous
  Country: US (occurrence: US)
  Receive Date: 20240828
  Receipt Date: 20240828
  Transmission Date: 20241017
  Serious: No
  Sender: ABBVIE
  Company Number: US-ABBVIE-5891645

PATIENT
  Age: 80 Year
  Sex: Female

DRUGS (1)
  1. ARMOUR THYROID [Suspect]
     Active Substance: THYROID, PORCINE
     Indication: Hypothyroidism
     Route: 065
     Dates: start: 1990

REACTIONS (2)
  - Dysphonia [Unknown]
  - Discomfort [Unknown]

NARRATIVE: CASE EVENT DATE: 20240301
